FAERS Safety Report 10039012 (Version 1)
Quarter: 2014Q1

REPORT INFORMATION
  Report Type: Spontaneous
  Country: IT (occurrence: IT)
  Receive Date: 20140326
  Receipt Date: 20140326
  Transmission Date: 20141002
  Serious: Yes (Death, Hospitalization)
  Sender: FDA-Public Use
  Company Number: IT-BRISTOL-MYERS SQUIBB COMPANY-20504387

PATIENT
  Age: 6 Decade
  Sex: Male

DRUGS (2)
  1. IPILIMUMAB [Suspect]
     Indication: METASTATIC MALIGNANT MELANOMA
     Dates: start: 201402
  2. DACARBAZINE [Suspect]
     Indication: METASTATIC MALIGNANT MELANOMA

REACTIONS (2)
  - Malignant neoplasm progression [Fatal]
  - Cardiac failure [Unknown]
